FAERS Safety Report 19994406 (Version 2)
Quarter: 2021Q4

REPORT INFORMATION
  Report Type: Spontaneous
  Country: FR (occurrence: FR)
  Receive Date: 20211026
  Receipt Date: 20211108
  Transmission Date: 20220303
  Serious: Yes (Hospitalization, Other)
  Sender: FDA-Public Use
  Company Number: FR-002147023-NVSC2021FR207365

PATIENT
  Age: 44 Year
  Sex: Male

DRUGS (16)
  1. VALACYCLOVIR [Suspect]
     Active Substance: VALACYCLOVIR HYDROCHLORIDE
     Indication: Product used for unknown indication
     Dosage: UNK
     Route: 065
  2. SOMATOSTATIN [Suspect]
     Active Substance: SOMATOSTATIN
     Indication: Product used for unknown indication
     Dosage: 500 MCG/ML (PER HOUR) ()
     Route: 065
  3. SOMATOSTATIN [Suspect]
     Active Substance: SOMATOSTATIN
     Dosage: 500 MCG/ML (PER HOUR) ()
     Route: 065
  4. SOMATOSTATIN [Suspect]
     Active Substance: SOMATOSTATIN
     Dosage: 500 MCG/ML (PER HOUR) ()
     Route: 065
  5. TACROLIMUS [Suspect]
     Active Substance: TACROLIMUS
     Indication: Product used for unknown indication
     Dosage: UNK
     Route: 065
  6. TACROLIMUS [Suspect]
     Active Substance: TACROLIMUS
     Route: 065
  7. TACROLIMUS [Suspect]
     Active Substance: TACROLIMUS
     Route: 065
  8. DUPHALAC [Suspect]
     Active Substance: LACTULOSE
     Indication: Product used for unknown indication
     Dosage: UNK
     Route: 065
  9. DUPHALAC [Suspect]
     Active Substance: LACTULOSE
     Route: 065
  10. DUPHALAC [Suspect]
     Active Substance: LACTULOSE
     Route: 065
  11. LANSOPRAZOLE [Suspect]
     Active Substance: LANSOPRAZOLE
     Indication: Product used for unknown indication
     Dosage: UNK
     Route: 065
  12. LANSOPRAZOLE [Suspect]
     Active Substance: LANSOPRAZOLE
     Route: 065
  13. LANSOPRAZOLE [Suspect]
     Active Substance: LANSOPRAZOLE
     Route: 065
  14. KARDEGIC [Suspect]
     Active Substance: ASPIRIN DL-LYSINE
     Indication: Product used for unknown indication
     Dosage: 160 MG, UNK
     Route: 065
  15. KARDEGIC [Suspect]
     Active Substance: ASPIRIN DL-LYSINE
     Route: 065
  16. KARDEGIC [Suspect]
     Active Substance: ASPIRIN DL-LYSINE
     Route: 065

REACTIONS (3)
  - Gastric varices [Unknown]
  - Gastrointestinal haemorrhage [Unknown]
  - Portal hypertension [Unknown]
